FAERS Safety Report 13465195 (Version 4)
Quarter: 2017Q4

REPORT INFORMATION
  Report Type: Report from Study
  Country: US (occurrence: US)
  Receive Date: 20170421
  Receipt Date: 20171107
  Transmission Date: 20180320
  Serious: Yes (Other)
  Sender: FDA-Public Use
  Company Number: US-AMGEN-USASL2017059247

PATIENT
  Age: 70 Year
  Sex: Female

DRUGS (1)
  1. ENBREL [Suspect]
     Active Substance: ETANERCEPT
     Indication: RHEUMATOID ARTHRITIS
     Dosage: 50 MG, QWK
     Route: 065
     Dates: end: 20171017

REACTIONS (5)
  - Bursitis [Unknown]
  - Fibromyalgia [Unknown]
  - Chondrocalcinosis pyrophosphate [Not Recovered/Not Resolved]
  - Fall [Unknown]
  - Skin neoplasm excision [Not Recovered/Not Resolved]
